FAERS Safety Report 9200453 (Version 1)
Quarter: 2013Q1

REPORT INFORMATION
  Report Type: Spontaneous
  Country: ID (occurrence: ID)
  Receive Date: 20130329
  Receipt Date: 20130329
  Transmission Date: 20140127
  Serious: Yes (Death, Hospitalization)
  Sender: FDA-Public Use
  Company Number: PHHY2013ID029945

PATIENT
  Age: 33 Year
  Sex: Male

DRUGS (2)
  1. GLIVEC [Suspect]
     Indication: CHRONIC MYELOID LEUKAEMIA
     Dosage: 100 MG, 2 X 4 TABLETS PER DAY
     Route: 048
  2. GLIVEC [Suspect]
     Dosage: 100 MG, 1 X 6 TABLETS PER DAY

REACTIONS (3)
  - Death [Fatal]
  - Renal failure [Unknown]
  - Abdominal distension [Unknown]
